FAERS Safety Report 20821578 (Version 2)
Quarter: 2022Q2

REPORT INFORMATION
  Report Type: Report from Study
  Country: CA (occurrence: CA)
  Receive Date: 20220512
  Receipt Date: 20220629
  Transmission Date: 20220721
  Serious: Yes (Death)
  Sender: FDA-Public Use
  Company Number: CA-ABBVIE-22K-028-4391712-00

PATIENT
  Age: 21 Year
  Sex: Female

DRUGS (1)
  1. LUPRON DEPOT [Suspect]
     Active Substance: LEUPROLIDE ACETATE
     Indication: Sarcoma
     Route: 030
     Dates: start: 20210828

REACTIONS (2)
  - Rhabdomyosarcoma [Fatal]
  - Off label use [Unknown]

NARRATIVE: CASE EVENT DATE: 20220422
